FAERS Safety Report 20609046 (Version 1)
Quarter: 2022Q1

REPORT INFORMATION
  Report Type: Spontaneous
  Country: US (occurrence: US)
  Receive Date: 20220317
  Receipt Date: 20220317
  Transmission Date: 20220423
  Serious: No
  Sender: FDA-Public Use
  Company Number: US-SMITH AND NEPHEW, INC-2021SMT00052

PATIENT
  Sex: Male
  Weight: 76.463 kg

DRUGS (4)
  1. COLLAGENASE SANTYL [Suspect]
     Active Substance: COLLAGENASE CLOSTRIDIUM HISTOLYTICUM
     Indication: Wound
     Dosage: ^TOO MUCH^
     Route: 061
     Dates: start: 202106, end: 202109
  2. COLLAGENASE SANTYL [Suspect]
     Active Substance: COLLAGENASE CLOSTRIDIUM HISTOLYTICUM
     Dosage: A LITTLE SQUEEZE TO COVER THE WOUND MIXED 50/50 WITH MUPIROCIN OINTMENT, 1X/DAY
     Route: 061
     Dates: start: 202109
  3. MUPIROCIN [Concomitant]
     Active Substance: MUPIROCIN
  4. ^A WHOLE LOT OF OTHER MEDICATIONS^ [Concomitant]

REACTIONS (3)
  - Impaired healing [Not Recovered/Not Resolved]
  - Incorrect dose administered [Recovered/Resolved]
  - Product use issue [Recovered/Resolved]

NARRATIVE: CASE EVENT DATE: 20210101
